FAERS Safety Report 11221760 (Version 4)
Quarter: 2015Q3

REPORT INFORMATION
  Report Type: Spontaneous
  Country: US (occurrence: US)
  Receive Date: 20150626
  Receipt Date: 20150929
  Transmission Date: 20151125
  Serious: Yes (Hospitalization)
  Sender: FDA-Public Use
  Company Number: US-PFIZER INC-2015210432

PATIENT
  Age: 60 Year
  Sex: Male

DRUGS (3)
  1. RAMIPRIL. [Concomitant]
     Active Substance: RAMIPRIL
     Dosage: UNK
     Dates: start: 2013, end: 20150601
  2. SUTENT [Suspect]
     Active Substance: SUNITINIB MALATE
     Indication: LUNG NEOPLASM MALIGNANT
     Dosage: 37.5 MG, 1X/DAY
     Dates: start: 2011
  3. SUTENT [Suspect]
     Active Substance: SUNITINIB MALATE
     Dosage: 10 MG, UNK
     Dates: end: 20150601

REACTIONS (2)
  - Intervertebral disc protrusion [Not Recovered/Not Resolved]
  - Product use issue [Recovered/Resolved]

NARRATIVE: CASE EVENT DATE: 2011
